FAERS Safety Report 4668467-1 (Version None)
Quarter: 2005Q2

REPORT INFORMATION
  Report Type: 
  Country: None (occurrence: None)
  Receive Date: 20050523
  Receipt Date: 20050513
  Transmission Date: 20051028
  Serious: Yes (Other)
  Sender: FDA-Public Use
  Company Number: 200514398GDDC

PATIENT
  Age: 54 Year
  Sex: Female

DRUGS (5)
  1. DOCETAXEL [Suspect]
     Indication: NON-SMALL CELL LUNG CANCER
     Route: 042
     Dates: start: 20050301, end: 20050426
  2. NEXIUM [Concomitant]
     Indication: GASTROOESOPHAGEAL REFLUX DISEASE
     Dates: start: 20020101
  3. SSRI [Concomitant]
     Indication: DEPRESSION
     Dates: start: 20020101
  4. PARACETAMOL [Concomitant]
     Indication: HEADACHE
     Dates: start: 20020101
  5. PARACETAMOL [Concomitant]
     Indication: PAIN
     Dates: start: 20020101

REACTIONS (2)
  - FUNGAL INFECTION [None]
  - LICHEN PLANUS [None]
